FAERS Safety Report 6672748-X (Version None)
Quarter: 2010Q2

REPORT INFORMATION
  Report Type: 
  Country: None (occurrence: None)
  Receive Date: 20100408
  Receipt Date: 20100406
  Transmission Date: 20101027
  Serious: Yes (Death, Other)
  Sender: FDA-Public Use
  Company Number: AU-PFIZER INC-2010043468

PATIENT
  Age: 68 Year

DRUGS (1)
  1. REVATIO [Suspect]
     Indication: PULMONARY HYPERTENSION

REACTIONS (1)
  - DEATH [None]
